FAERS Safety Report 12269628 (Version 1)
Quarter: 2016Q2

REPORT INFORMATION
  Report Type: Spontaneous
  Country: FR (occurrence: FR)
  Receive Date: 20160414
  Receipt Date: 20160414
  Transmission Date: 20160815
  Serious: Yes (Other)
  Sender: FDA-Public Use
  Company Number: FR-TEVA-649739ISR

PATIENT
  Sex: Female

DRUGS (1)
  1. RASAGILINE [Suspect]
     Active Substance: RASAGILINE

REACTIONS (2)
  - Aphasia [Unknown]
  - Hemiplegia [Unknown]

NARRATIVE: CASE EVENT DATE: 201603
